FAERS Safety Report 11862006 (Version 1)
Quarter: 2015Q4

REPORT INFORMATION
  Report Type: Spontaneous
  Country: US (occurrence: US)
  Receive Date: 20151222
  Receipt Date: 20151222
  Transmission Date: 20160305
  Serious: Yes (Other)
  Sender: FDA-Public Use
  Company Number: US-ROCHE-408098

PATIENT
  Age: 41 Year
  Sex: Female
  Weight: 102.1 kg

DRUGS (6)
  1. RIBASPHERE [Suspect]
     Active Substance: RIBAVIRIN
     Indication: HEPATITIS C
     Route: 048
     Dates: start: 20111030
  2. COPEGUS [Suspect]
     Active Substance: RIBAVIRIN
     Indication: HEPATITIS C
     Route: 048
     Dates: start: 20040823, end: 20050717
  3. INCIVEK [Suspect]
     Active Substance: TELAPREVIR
     Indication: HEPATITIS C
     Route: 065
     Dates: start: 20111030
  4. EFFEXOR [Concomitant]
     Active Substance: VENLAFAXINE HYDROCHLORIDE
     Indication: ANXIETY
     Route: 048
  5. PEGASYS [Suspect]
     Active Substance: PEGINTERFERON ALFA-2A
     Indication: HEPATITIS C
     Dosage: FORM STRENGTH=360 MCG/ML
     Route: 058
     Dates: start: 20040823, end: 20050717
  6. PEGASYS [Suspect]
     Active Substance: PEGINTERFERON ALFA-2A
     Route: 058

REACTIONS (16)
  - White blood cell count decreased [Unknown]
  - Chills [Recovering/Resolving]
  - Vomiting [Recovering/Resolving]
  - Pyrexia [Unknown]
  - Dacryocanaliculitis [Recovered/Resolved]
  - Anxiety [Recovered/Resolved]
  - Loss of consciousness [Unknown]
  - Cough [Recovered/Resolved]
  - Nausea [Recovering/Resolving]
  - Pyrexia [Recovering/Resolving]
  - Dizziness [Recovering/Resolving]
  - Vertigo [Unknown]
  - Red blood cell count decreased [Unknown]
  - Haemoglobin decreased [Not Recovered/Not Resolved]
  - Fatigue [Unknown]
  - Chest discomfort [Not Recovered/Not Resolved]

NARRATIVE: CASE EVENT DATE: 200411
